FAERS Safety Report 8267264-8 (Version None)
Quarter: 2012Q2

REPORT INFORMATION
  Report Type: 
  Country: None (occurrence: None)
  Receive Date: 20120405
  Receipt Date: 20120405
  Transmission Date: 20120825
  Serious: Yes (Death, Hospitalization)
  Sender: FDA-Public Use
  Company Number: None

PATIENT
  Sex: Male
  Weight: 57.6 kg

DRUGS (2)
  1. CARBOPLATIN [Suspect]
     Dosage: 487 MGG
     Dates: end: 20120229
  2. TAXOTERE [Suspect]
     Dosage: 126 MG
     Dates: end: 20120229

REACTIONS (10)
  - ASTHENIA [None]
  - DEHYDRATION [None]
  - NEUTROPENIA [None]
  - HYPOTENSION [None]
  - CLOSTRIDIAL INFECTION [None]
  - THROMBOCYTOPENIA [None]
  - FATIGUE [None]
  - MUSCLE SPASMS [None]
  - MALAISE [None]
  - DEVICE DISLOCATION [None]
